FAERS Safety Report 9124551 (Version 1)
Quarter: 2013Q1

REPORT INFORMATION
  Report Type: Spontaneous
  Country: ES (occurrence: ES)
  Receive Date: 20130227
  Receipt Date: 20130227
  Transmission Date: 20140127
  Serious: Yes (Other)
  Sender: FDA-Public Use
  Company Number: ES-EISAI INC-E2080-00594-SPO-ES

PATIENT
  Age: 10 Year
  Sex: Female
  Weight: 14.8 kg

DRUGS (3)
  1. INOVELON [Suspect]
     Indication: EPILEPSY
     Route: 048
     Dates: start: 20111216
  2. LEVETIRACETAM [Concomitant]
     Indication: EPILEPSY
     Route: 048
     Dates: start: 2004
  3. VALPROIC ACID [Concomitant]
     Indication: EPILEPSY
     Route: 048
     Dates: start: 2000

REACTIONS (1)
  - Weight decreased [Not Recovered/Not Resolved]
